FAERS Safety Report 11509466 (Version 1)
Quarter: 2015Q3

REPORT INFORMATION
  Report Type: Spontaneous
  Country: JP (occurrence: JP)
  Receive Date: 20150915
  Receipt Date: 20150915
  Transmission Date: 20151125
  Serious: Yes (Other)
  Sender: FDA-Public Use
  Company Number: JP-JNJFOC-20150909101

PATIENT

DRUGS (1)
  1. TRAMCET [Suspect]
     Active Substance: ACETAMINOPHEN\TRAMADOL
     Indication: PRODUCT USED FOR UNKNOWN INDICATION
     Route: 048

REACTIONS (7)
  - Dementia [Unknown]
  - Drug eruption [Unknown]
  - Hepatic function abnormal [Unknown]
  - Nausea [Unknown]
  - Gastric ulcer [Unknown]
  - Inappropriate schedule of drug administration [Unknown]
  - Disease progression [Unknown]
